FAERS Safety Report 10830247 (Version 1)
Quarter: 2015Q1

REPORT INFORMATION
  Report Type: Report from Study
  Country: US (occurrence: US)
  Receive Date: 20150219
  Receipt Date: 20150219
  Transmission Date: 20150721
  Serious: No
  Sender: FDA-Public Use
  Company Number: US-ABBVIE-14P-163-1187725-00

PATIENT
  Age: 41 Year
  Sex: Female

DRUGS (7)
  1. HUMIRA [Suspect]
     Active Substance: ADALIMUMAB
     Indication: CROHN^S DISEASE
     Dates: start: 20131217, end: 20131217
  2. FISH OIL [Concomitant]
     Active Substance: FISH OIL
     Indication: PRODUCT USED FOR UNKNOWN INDICATION
  3. HUMIRA [Suspect]
     Active Substance: ADALIMUMAB
     Dates: start: 20131231, end: 20131231
  4. HUMIRA [Suspect]
     Active Substance: ADALIMUMAB
  5. PREDNISONE. [Concomitant]
     Active Substance: PREDNISONE
     Indication: PRODUCT USED FOR UNKNOWN INDICATION
     Dosage: TAPERING DOSE.  DOES NOT REMEMBER DOSE WHEN SHE BEGAN HUMIRA
  6. MV [Concomitant]
     Indication: PRODUCT USED FOR UNKNOWN INDICATION
  7. HYDROCODONE [Concomitant]
     Active Substance: HYDROCODONE
     Indication: ABDOMINAL PAIN
     Dosage: 5/500 MG - SHE TAKES 1 DAILY
     Dates: start: 20131210

REACTIONS (2)
  - Muscle spasms [Not Recovered/Not Resolved]
  - Vision blurred [Not Recovered/Not Resolved]

NARRATIVE: CASE EVENT DATE: 20131218
